FAERS Safety Report 7931264-5 (Version None)
Quarter: 2011Q4

REPORT INFORMATION
  Report Type: 
  Country: None (occurrence: None)
  Receive Date: 20111121
  Receipt Date: 20111114
  Transmission Date: 20120403
  Serious: Yes (Other)
  Sender: FDA-Public Use
  Company Number: GB-BAXTER-2011BH036318

PATIENT

DRUGS (1)
  1. SUPRANE [Suspect]
     Indication: GENERAL ANAESTHESIA
     Route: 055

REACTIONS (1)
  - PREMATURE RECOVERY FROM ANAESTHESIA [None]
